FAERS Safety Report 18214148 (Version 1)
Quarter: 2020Q3

REPORT INFORMATION
  Report Type: Spontaneous
  Country: FR (occurrence: FR)
  Receive Date: 20200831
  Receipt Date: 20200831
  Transmission Date: 20201103
  Serious: Yes (Hospitalization)
  Sender: FDA-Public Use
  Company Number: NVSC2020FR234568

PATIENT
  Age: 22 Year
  Sex: Female
  Weight: 56 kg

DRUGS (10)
  1. PROGESTAN [Concomitant]
     Active Substance: PROGESTERONE
     Indication: PRODUCT USED FOR UNKNOWN INDICATION
     Dosage: UNK
     Route: 065
  2. CERTICAN [Suspect]
     Active Substance: EVEROLIMUS
     Indication: ORGAN TRANSPLANT
     Dosage: 2 MG, QD
     Route: 048
  3. PROGRAF [Suspect]
     Active Substance: TACROLIMUS
     Indication: ORGAN TRANSPLANT
     Dosage: 7 MG, QD
     Route: 048
     Dates: start: 20121003, end: 2014
  4. CORTANCYL [Suspect]
     Active Substance: PREDNISONE
     Indication: ORGAN TRANSPLANT
     Dosage: 15 MG, QD
     Route: 048
     Dates: start: 20121004
  5. CALCIDOSE [Concomitant]
     Indication: PRODUCT USED FOR UNKNOWN INDICATION
     Dosage: UNK
     Route: 065
  6. DOLIPRANE [Concomitant]
     Active Substance: ACETAMINOPHEN
     Indication: PRODUCT USED FOR UNKNOWN INDICATION
     Dosage: 500 MG
     Route: 065
  7. VASTEN [Concomitant]
     Indication: PRODUCT USED FOR UNKNOWN INDICATION
     Dosage: UNK
     Route: 065
  8. UVEDOSE [Concomitant]
     Active Substance: CHOLECALCIFEROL
     Indication: PRODUCT USED FOR UNKNOWN INDICATION
     Dosage: UNK
     Route: 065
  9. INEXIUM [Concomitant]
     Active Substance: ESOMEPRAZOLE
     Indication: PRODUCT USED FOR UNKNOWN INDICATION
     Dosage: UNK
     Route: 065
  10. OESTRODOSE [Concomitant]
     Active Substance: ESTRADIOL
     Indication: PRODUCT USED FOR UNKNOWN INDICATION
     Dosage: UNK
     Route: 065

REACTIONS (1)
  - Type 1 diabetes mellitus [Not Recovered/Not Resolved]

NARRATIVE: CASE EVENT DATE: 20131204
